FAERS Safety Report 24695474 (Version 1)
Quarter: 2024Q4

REPORT INFORMATION
  Report Type: Spontaneous
  Country: CN (occurrence: CN)
  Receive Date: 20241204
  Receipt Date: 20241204
  Transmission Date: 20250114
  Serious: No
  Sender: ALKEM
  Company Number: CN-ALKEM LABORATORIES LIMITED-CN-ALKEM-2023-15718

PATIENT
  Sex: Female

DRUGS (4)
  1. METFORMIN HYDROCHLORIDE [Suspect]
     Active Substance: METFORMIN HYDROCHLORIDE
     Indication: Overweight
     Dosage: 500 MILLIGRAM, TID
     Route: 065
  2. METFORMIN HYDROCHLORIDE [Suspect]
     Active Substance: METFORMIN HYDROCHLORIDE
     Indication: Obesity
  3. EXENATIDE [Suspect]
     Active Substance: EXENATIDE
     Indication: Overweight
     Dosage: 2 MILLIGRAM, ONCE WEEKLY
     Route: 065
  4. EXENATIDE [Suspect]
     Active Substance: EXENATIDE
     Indication: Obesity

REACTIONS (1)
  - Diarrhoea [Unknown]
